FAERS Safety Report 6843911-X (Version None)
Quarter: 2010Q3

REPORT INFORMATION
  Report Type: 
  Country: None (occurrence: None)
  Receive Date: 20100715
  Receipt Date: 20100706
  Transmission Date: 20110219
  Serious: Yes (Other)
  Sender: FDA-Public Use
  Company Number: US-ELI_LILLY_AND_COMPANY-US201005007167

PATIENT
  Sex: Female
  Weight: 87.075 kg

DRUGS (9)
  1. BYETTA [Suspect]
     Indication: TYPE 2 DIABETES MELLITUS
     Dosage: 5 U, DAILY (1/D)
     Route: 058
  2. BYETTA [Suspect]
     Dosage: 10 UG, 2/D
     Route: 058
     Dates: start: 20080307
  3. BYETTA [Suspect]
     Dosage: 5 UG, 2/D
     Route: 058
     Dates: start: 20100427, end: 20100520
  4. ATENOLOL [Concomitant]
  5. GLYBURIDE AND METFORMIN HCL [Concomitant]
  6. KLOR-CON [Concomitant]
  7. LISINOPRIL [Concomitant]
  8. SYNTHROID [Concomitant]
  9. TRICOR [Concomitant]

REACTIONS (4)
  - CHOLECYSTECTOMY [None]
  - DIARRHOEA [None]
  - PANCREATITIS [None]
  - WEIGHT DECREASED [None]
